FAERS Safety Report 10802812 (Version 4)
Quarter: 2015Q2

REPORT INFORMATION
  Report Type: Spontaneous
  Country: GR (occurrence: GR)
  Receive Date: 20150217
  Receipt Date: 20150602
  Transmission Date: 20150821
  Serious: Yes (Other)
  Sender: FDA-Public Use
  Company Number: GR-PFIZER INC-2015054221

PATIENT
  Age: 78 Year
  Sex: Female

DRUGS (2)
  1. SUTENT [Suspect]
     Active Substance: SUNITINIB MALATE
     Indication: RENAL CANCER METASTATIC
     Dosage: 50 MG, CYCLIC (4 WEEKS ON, 2 WEEKS OFF)
     Route: 048
     Dates: start: 201412
  2. SUTENT [Suspect]
     Active Substance: SUNITINIB MALATE
     Dosage: 37.5 MG, CYCLIC (2 WEEKS ON, 2 WEEKS OFF)
     Dates: end: 201505

REACTIONS (12)
  - Renal cancer metastatic [Unknown]
  - Haematoma [Recovering/Resolving]
  - Asthenia [Recovering/Resolving]
  - Skin haemorrhage [Recovering/Resolving]
  - Gait disturbance [Recovering/Resolving]
  - Oesophageal irritation [Recovering/Resolving]
  - Dysphagia [Recovering/Resolving]
  - Disease progression [Unknown]
  - Wound [Recovering/Resolving]
  - Weight decreased [Recovering/Resolving]
  - Skin necrosis [Recovering/Resolving]
  - Fatigue [Recovering/Resolving]

NARRATIVE: CASE EVENT DATE: 201505
